FAERS Safety Report 9236991 (Version 3)
Quarter: 2015Q1

REPORT INFORMATION
  Report Type: Spontaneous
  Country: US (occurrence: US)
  Receive Date: 20130417
  Receipt Date: 20150212
  Transmission Date: 20150721
  Serious: No
  Sender: FDA-Public Use
  Company Number: US-009507513-1304USA008271

PATIENT
  Sex: Male
  Weight: 96.15 kg

DRUGS (1)
  1. PROPECIA [Suspect]
     Active Substance: FINASTERIDE
     Indication: ANDROGENETIC ALOPECIA
     Dosage: 1 MG, QD
     Route: 048
     Dates: start: 20010914, end: 2004

REACTIONS (17)
  - Prostatitis [Not Recovered/Not Resolved]
  - Conjunctivitis [Unknown]
  - Generalised anxiety disorder [Not Recovered/Not Resolved]
  - Semen analysis abnormal [Unknown]
  - Blood testosterone decreased [Not Recovered/Not Resolved]
  - Calculus urinary [Unknown]
  - Nephrolithiasis [Unknown]
  - Cognitive disorder [Not Recovered/Not Resolved]
  - Sexual dysfunction [Not Recovered/Not Resolved]
  - Mastitis [Unknown]
  - Semen discolouration [Unknown]
  - Gastrooesophageal reflux disease [Unknown]
  - Loss of libido [Not Recovered/Not Resolved]
  - Depression [Unknown]
  - Irritable bowel syndrome [Unknown]
  - Erectile dysfunction [Not Recovered/Not Resolved]
  - Prostatism [Unknown]

NARRATIVE: CASE EVENT DATE: 2002
